FAERS Safety Report 16573114 (Version 3)
Quarter: 2019Q3

REPORT INFORMATION
  Report Type: Report from Study
  Country: NL (occurrence: NL)
  Receive Date: 20190715
  Receipt Date: 20190827
  Transmission Date: 20191004
  Serious: Yes (Hospitalization, Other)
  Sender: FDA-Public Use
  Company Number: NL-NAPPMUNDI-GBR-2019-0067888

PATIENT

DRUGS (19)
  1. ROSUVASTATIN. [Concomitant]
     Active Substance: ROSUVASTATIN
     Dosage: 5 MG, DAILY (5 MG, QD)
     Route: 065
  2. LIDOCAINE. [Concomitant]
     Active Substance: LIDOCAINE
     Dosage: 11 ML, UNK (STRENGTH 20,9/0,523MG/ML)
     Route: 065
  3. MAGNESIUM HYDROXIDE. [Concomitant]
     Active Substance: MAGNESIUM HYDROXIDE
     Dosage: 724 MG, DAILY (724 MG, QD)
     Route: 065
  4. OXYCODONE HYDROCHLORIDE. [Suspect]
     Active Substance: OXYCODONE HYDROCHLORIDE
     Indication: PAIN
     Dosage: UNK
     Route: 065
     Dates: start: 2016, end: 201904
  5. ETHINYLESTRADIOL W/LEVONORGESTREL [Concomitant]
     Active Substance: ETHINYL ESTRADIOL\LEVONORGESTREL
     Dosage: UNK (30 UNK, QD)
     Route: 065
  6. PREGABALIN. [Concomitant]
     Active Substance: PREGABALIN
     Dosage: 75 MG, Q12H (150 UNK, QD)
     Route: 065
  7. ALGLUCOSIDASE ALFA [Suspect]
     Active Substance: ALGLUCOSIDASE ALFA
     Indication: GLYCOGEN STORAGE DISEASE TYPE II
     Dosage: 50 MG, 2/WEEK (50 MG FL, 1 PC 40 MG/KG IN 1L, QOW)
     Route: 041
     Dates: start: 20021211
  8. MACROGOL [Concomitant]
     Active Substance: POLYETHYLENE GLYCOLS
     Dosage: UNK, PRN; 1 X PER DAY 2 SACHETS AS NECESSARY
     Route: 065
  9. VITAMIN B COMPLEX                  /00056201/ [Concomitant]
     Dosage: 1 PC PER DAY
     Route: 065
  10. FLUTICASONE. [Concomitant]
     Active Substance: FLUTICASONE
     Dosage: 1 DF, UNK (1 DF, Q4D/0.5MG/G)
  11. XYLOMETAZOLINE [Concomitant]
     Active Substance: XYLOMETAZOLINE
     Dosage: 1 DF, UNK (1 MG/ML, UNK)
     Route: 065
  12. IBUPROFEN. [Concomitant]
     Active Substance: IBUPROFEN
     Dosage: 600 MG, Q8H (600 MG, TID)
     Route: 065
  13. CALCIUM CARBONATE. [Concomitant]
     Active Substance: CALCIUM CARBONATE
     Dosage: 500 MG, DAILY (500 MG, QD)
  14. HYDROCORTISON                      /00028601/ [Concomitant]
     Active Substance: HYDROCORTISONE
     Dosage: 1 MG, QD
     Route: 065
  15. ETHINYLESTRADIOL W/LEVONORGESTREL [Concomitant]
     Active Substance: ETHINYL ESTRADIOL\LEVONORGESTREL
     Dosage: 1 DF, DAILY (1 DF, QD)
  16. OXAZEPAM. [Concomitant]
     Active Substance: OXAZEPAM
     Dosage: 10 MG, Q8H (10 MG, TID)
     Route: 065
  17. SODIUM PHOSPHATE [Concomitant]
     Active Substance: SODIUM PHOSPHATE
     Dosage: 1 DF, PRN
  18. PARACETAMOL [Concomitant]
     Active Substance: ACETAMINOPHEN
     Dosage: UNK (UNK UNK, UNK, 500MG, ZO NODIG 4 X PER DAG 1000 MILLIGRAM)
     Route: 065
  19. RANITIDINE. [Concomitant]
     Active Substance: RANITIDINE
     Dosage: 150 MG, Q12H (150 MG  BID)
     Route: 065

REACTIONS (9)
  - Substance dependence [Recovered/Resolved]
  - Serotonin syndrome [Recovered/Resolved]
  - Pain [Unknown]
  - Dyslipidaemia [Unknown]
  - Bladder catheterisation [Unknown]
  - General physical health deterioration [Recovered/Resolved]
  - Mental disorder [Not Recovered/Not Resolved]
  - Implantable defibrillator insertion [Unknown]
  - Headache [Unknown]

NARRATIVE: CASE EVENT DATE: 2005
